FAERS Safety Report 10925621 (Version 2)
Quarter: 2015Q3

REPORT INFORMATION
  Report Type: Spontaneous
  Country: US (occurrence: US)
  Receive Date: 20150318
  Receipt Date: 20150713
  Transmission Date: 20151125
  Serious: No
  Sender: FDA-Public Use
  Company Number: US-BRISTOL-MYERS SQUIBB COMPANY-BMS-2015-016409

PATIENT
  Age: 72 Year
  Sex: Male

DRUGS (2)
  1. CAMPTOSAR [Suspect]
     Active Substance: IRINOTECAN HYDROCHLORIDE
     Indication: COLON CANCER
     Dosage: 700 MG, QD
     Route: 042
     Dates: start: 20140909, end: 20150122
  2. ERBITUX [Suspect]
     Active Substance: CETUXIMAB
     Indication: COLON CANCER
     Dosage: 700 MG, QD
     Route: 042
     Dates: start: 20140909, end: 20150122

REACTIONS (1)
  - Rash [Unknown]
